FAERS Safety Report 8054181-1 (Version None)
Quarter: 2012Q1

REPORT INFORMATION
  Report Type: 
  Country: None (occurrence: None)
  Receive Date: 20120118
  Receipt Date: 20120113
  Transmission Date: 20120608
  Serious: Yes (Hospitalization)
  Sender: FDA-Public Use
  Company Number: US-ROCHE-1030296

PATIENT
  Sex: Female

DRUGS (2)
  1. PREDNISONE [Suspect]
     Indication: PRODUCT USED FOR UNKNOWN INDICATION
  2. BONIVA [Suspect]
     Indication: PRODUCT USED FOR UNKNOWN INDICATION

REACTIONS (13)
  - BRONCHITIS [None]
  - BONE FORMATION DECREASED [None]
  - HIP FRACTURE [None]
  - HOSPITALISATION [None]
  - GROIN PAIN [None]
  - LOWER LIMB FRACTURE [None]
  - WHEELCHAIR USER [None]
  - WALKING AID USER [None]
  - FALL [None]
  - PAIN IN EXTREMITY [None]
  - RASH [None]
  - CARDIAC OPERATION [None]
  - UNEVALUABLE EVENT [None]
